FAERS Safety Report 15622037 (Version 1)
Quarter: 2018Q4

REPORT INFORMATION
  Report Type: Spontaneous
  Country: FR (occurrence: FR)
  Receive Date: 20181115
  Receipt Date: 20181115
  Transmission Date: 20190205
  Serious: Yes (Other)
  Sender: FDA-Public Use
  Company Number: FR-PFIZER INC-2018462706

PATIENT
  Age: 39 Year
  Sex: Female

DRUGS (2)
  1. CORTISONE ACETATE. [Concomitant]
     Active Substance: CORTISONE ACETATE
  2. LYRICA [Suspect]
     Active Substance: PREGABALIN
     Indication: ULNAR NERVE INJURY
     Dosage: 1 DF, 1X/DAY
     Route: 048
     Dates: start: 20180830, end: 20180902

REACTIONS (3)
  - Dysphonia [Recovered/Resolved]
  - Product use in unapproved indication [Recovered/Resolved]
  - Angioedema [Recovered/Resolved]

NARRATIVE: CASE EVENT DATE: 20180830
